FAERS Safety Report 5489003-6 (Version None)
Quarter: 2007Q4

REPORT INFORMATION
  Report Type: 
  Country: None (occurrence: None)
  Receive Date: 20071005
  Receipt Date: 20070911
  Transmission Date: 20080405
  Serious: Yes (Hospitalization)
  Sender: FDA-Public Use
  Company Number: WSDF_00460

PATIENT
  Age: 16 Year
  Sex: Male
  Weight: 80 kg

DRUGS (1)
  1. WINRHO SDF [Suspect]
     Indication: IDIOPATHIC THROMBOCYTOPENIC PURPURA
     Dosage: 50 UG/KG ONCE
     Dates: start: 20040101, end: 20040101

REACTIONS (11)
  - CONDITION AGGRAVATED [None]
  - COOMBS DIRECT TEST POSITIVE [None]
  - HAEMOGLOBINAEMIA [None]
  - HAEMOGLOBINURIA [None]
  - INTRAVASCULAR HAEMOLYSIS [None]
  - NEUTROPENIA [None]
  - PYREXIA [None]
  - RASH [None]
  - RENAL IMPAIRMENT [None]
  - TACHYCARDIA [None]
  - THROMBOCYTOPENIA [None]
